FAERS Safety Report 8787164 (Version 1)
Quarter: 2012Q4

REPORT INFORMATION
  Report Type: 
  Country: US (occurrence: US)
  Receive Date: 20120914
  Receipt Date: 20120914
  Transmission Date: 20130627
  Serious: No
  Sender: FDA-Public Use
  Company Number: US-VERTEX PHARMACEUTICAL INC.-AE-2012-010836

PATIENT
  Age: 61 Year
  Sex: Female
  Weight: 72.73 kg

DRUGS (8)
  1. INCIVEK [Suspect]
     Indication: HEPATITIS C
     Route: 048
     Dates: start: 20120720
  2. PEGASYS [Concomitant]
     Indication: HEPATITIS C
     Route: 058
     Dates: start: 20120720
  3. RIBAVIRIN [Concomitant]
     Indication: HEPATITIS C
     Route: 048
     Dates: start: 20120720
  4. ZONEGRAN [Concomitant]
     Indication: CONVULSION
     Route: 048
  5. LAMICTAL [Concomitant]
     Indication: CONVULSION
     Route: 048
  6. ASPIRIN [Concomitant]
     Indication: ANTICOAGULANT THERAPY
     Route: 048
  7. ZOLOFT [Concomitant]
     Indication: DEPRESSION
     Route: 048
  8. CALCIUM/ VITAMIN D [Concomitant]
     Indication: MEDICAL DIET
     Route: 048

REACTIONS (2)
  - Anxiety [Not Recovered/Not Resolved]
  - Lip dry [Not Recovered/Not Resolved]
